FAERS Safety Report 6965494-6 (Version None)
Quarter: 2010Q3

REPORT INFORMATION
  Report Type: 
  Country: None (occurrence: None)
  Receive Date: 20100903
  Receipt Date: 20100827
  Transmission Date: 20110219
  Serious: Yes (Hospitalization)
  Sender: FDA-Public Use
  Company Number: AT-JNJFOC-20100809301

PATIENT
  Age: 54 Year
  Sex: Female
  Weight: 60 kg

DRUGS (5)
  1. GOLIMUMAB [Suspect]
     Indication: RHEUMATOID ARTHRITIS
     Route: 058
  2. DICLOFENAC [Concomitant]
     Indication: PAIN
     Route: 048
  3. PANTOPRAZOLE SODIUM [Concomitant]
     Indication: GASTROINTESTINAL DISORDER THERAPY
     Route: 048
  4. FOLIC ACID [Concomitant]
     Indication: PROPHYLAXIS
     Dosage: FREQUENCY: ^BLS^
     Route: 048
  5. METHOTREXATE SODIUM [Concomitant]
     Dosage: FREQUENCY: ^QS^
     Route: 048

REACTIONS (2)
  - HELICOBACTER GASTRITIS [None]
  - PYLORIC STENOSIS [None]
